FAERS Safety Report 13182089 (Version 2)
Quarter: 2017Q1

REPORT INFORMATION
  Report Type: Spontaneous
  Country: US (occurrence: US)
  Receive Date: 20170202
  Receipt Date: 20170214
  Transmission Date: 20170428
  Serious: Yes (Other)
  Sender: FDA-Public Use
  Company Number: US-SAOL THERAPEUTICS-2017SAO00209

PATIENT
  Age: 68 Year
  Sex: Female

DRUGS (4)
  1. SUFENTA [Suspect]
     Active Substance: SUFENTANIL CITRATE
     Dosage: 736 ?G, \DAY
     Route: 037
  2. BACLOFEN. [Suspect]
     Active Substance: BACLOFEN
     Indication: POST LAMINECTOMY SYNDROME
  3. DILAUDID [Concomitant]
     Active Substance: HYDROMORPHONE HYDROCHLORIDE
     Dosage: FOR BREAK THORUGH PAIN
     Route: 048
  4. BACLOFEN. [Suspect]
     Active Substance: BACLOFEN
     Indication: SPINAL PAIN
     Dosage: 110.4 ?G, \DAY
     Route: 037

REACTIONS (9)
  - Loss of consciousness [Recovered/Resolved]
  - Depressed level of consciousness [Recovered/Resolved]
  - Dural tear [Recovered/Resolved]
  - Device issue [Recovered/Resolved]
  - Off label use [Unknown]
  - Drug withdrawal syndrome [Recovered/Resolved]
  - Dizziness [Unknown]
  - Confusional state [Unknown]
  - Pain [Unknown]

NARRATIVE: CASE EVENT DATE: 201604
